FAERS Safety Report 12474417 (Version 2)
Quarter: 2016Q3

REPORT INFORMATION
  Report Type: Spontaneous
  Country: PL (occurrence: PL)
  Receive Date: 20160617
  Receipt Date: 20160715
  Transmission Date: 20161109
  Serious: Yes (Hospitalization, Other)
  Sender: FDA-Public Use
  Company Number: PL-ROCHE-1775864

PATIENT
  Age: 81 Year
  Sex: Male
  Weight: 85 kg

DRUGS (11)
  1. CYCLOPHOSPHAMIDE. [Concomitant]
     Active Substance: CYCLOPHOSPHAMIDE
  2. LEUKERAN [Concomitant]
     Active Substance: CHLORAMBUCIL
     Indication: CHRONIC LYMPHOCYTIC LEUKAEMIA
     Route: 048
     Dates: start: 20150527, end: 20151129
  3. GAZYVARO [Suspect]
     Active Substance: OBINUTUZUMAB
     Dosage: COURSES 2-5
     Route: 042
     Dates: start: 201506, end: 201510
  4. GAZYVARO [Suspect]
     Active Substance: OBINUTUZUMAB
     Route: 042
  5. GAZYVARO [Suspect]
     Active Substance: OBINUTUZUMAB
     Route: 042
     Dates: end: 201506
  6. VINCRISTIN [Concomitant]
     Active Substance: VINCRISTINE
  7. RCC TRANSFUSION [Concomitant]
  8. DOXORUBICIN [Concomitant]
     Active Substance: DOXORUBICIN
  9. GAZYVARO [Suspect]
     Active Substance: OBINUTUZUMAB
     Dosage: COURSES 2-5
     Route: 042
     Dates: start: 201510, end: 201511
  10. GAZYVARO [Suspect]
     Active Substance: OBINUTUZUMAB
     Indication: CHRONIC LYMPHOCYTIC LEUKAEMIA
     Dosage: 1 COURSE
     Route: 042
     Dates: start: 20150527, end: 20151129
  11. PREDNISONE. [Concomitant]
     Active Substance: PREDNISONE

REACTIONS (6)
  - Pleural effusion [Unknown]
  - Richter^s syndrome [Not Recovered/Not Resolved]
  - Dyspnoea [Unknown]
  - Percussion test abnormal [Unknown]
  - Superior vena cava syndrome [Unknown]
  - Mediastinum neoplasm [Not Recovered/Not Resolved]

NARRATIVE: CASE EVENT DATE: 201605
